FAERS Safety Report 5324365-1 (Version None)
Quarter: 2007Q2

REPORT INFORMATION
  Report Type: 
  Country: None (occurrence: None)
  Receive Date: 20070514
  Receipt Date: 20070503
  Transmission Date: 20071010
  Serious: Yes (Hospitalization, Other)
  Sender: FDA-Public Use
  Company Number: US-PFIZER INC-2007036096

PATIENT
  Sex: Female
  Weight: 56.818 kg

DRUGS (2)
  1. CELEBREX [Suspect]
     Indication: OSTEOARTHRITIS
  2. CELEBREX [Suspect]
     Indication: OSTEOPOROSIS

REACTIONS (4)
  - ABDOMINAL PAIN [None]
  - BODY TEMPERATURE DECREASED [None]
  - HYPERSENSITIVITY [None]
  - RASH [None]
